FAERS Safety Report 16321221 (Version 1)
Quarter: 2019Q2

REPORT INFORMATION
  Report Type: Spontaneous
  Country: US (occurrence: US)
  Receive Date: 20190516
  Receipt Date: 20190516
  Transmission Date: 20190711
  Serious: Yes (Other)
  Sender: FDA-Public Use
  Company Number: US-PFIZER INC-2019201161

PATIENT
  Age: 70 Year
  Sex: Female

DRUGS (3)
  1. PROCARDIA XL [Suspect]
     Active Substance: NIFEDIPINE
     Dosage: 60 MG, TWO TIMES A DAY
     Route: 048
     Dates: end: 20190508
  2. ADALAT CC [Concomitant]
     Active Substance: NIFEDIPINE
     Dosage: 60 MG, 2X/DAY
     Route: 048
  3. NEOSPORIN TOPICAL [Concomitant]
     Dosage: 2X/DAY ([BACITRACIN: 400 UNITS]/ [NEOMYCIN: 3.5 MG]/ [POLYMYXIN B: 5000 UNITS])
     Route: 061

REACTIONS (3)
  - Off label use [Unknown]
  - Oesophageal candidiasis [Unknown]
  - Product use issue [Unknown]
